FAERS Safety Report 14324551 (Version 1)
Quarter: 2017Q4

REPORT INFORMATION
  Report Type: Spontaneous
  Country: US (occurrence: US)
  Receive Date: 20171222
  Receipt Date: 20171222
  Transmission Date: 20180321
  Serious: Yes (Hospitalization)
  Sender: FDA-Public Use
  Company Number: None

PATIENT
  Age: 75 Year
  Sex: Female
  Weight: 126 kg

DRUGS (2)
  1. METHENAMINE [Suspect]
     Active Substance: METHENAMINE
     Route: 048
     Dates: start: 20170901, end: 20170912
  2. SULFAMETHOXAZOLE/TRIMETHOPRIM [Suspect]
     Active Substance: SULFAMETHOXAZOLE\TRIMETHOPRIM
     Indication: URINARY TRACT INFECTION
     Route: 048
     Dates: start: 20170807, end: 20170816

REACTIONS (6)
  - Leukopenia [None]
  - Haemorrhage [None]
  - Anaemia [None]
  - Pancytopenia [None]
  - Fatigue [None]
  - Thrombocytopenia [None]

NARRATIVE: CASE EVENT DATE: 20170912
